FAERS Safety Report 18389695 (Version 1)
Quarter: 2020Q4

REPORT INFORMATION
  Report Type: Report from Study
  Country: NL (occurrence: NL)
  Receive Date: 20201016
  Receipt Date: 20201016
  Transmission Date: 20210114
  Serious: No
  Sender: FDA-Public Use
  Company Number: NL-ALVOGEN-2018-ALVOGEN-094750

PATIENT
  Age: 71 Year
  Sex: Female

DRUGS (4)
  1. CARBIDOPA/LEVODOPA [Suspect]
     Active Substance: CARBIDOPA\LEVODOPA
     Indication: PRODUCT USED FOR UNKNOWN INDICATION
     Dosage: MD: 4.0, CD: 2.8, ED: 2.5, CND: 2.6, END: 1.5 ()
     Route: 050
  2. ZOLPIDEM [Concomitant]
     Active Substance: ZOLPIDEM TARTRATE
     Indication: INSOMNIA
  3. RIVASTIGMINE. [Suspect]
     Active Substance: RIVASTIGMINE
     Indication: HALLUCINATION
     Dosage: ()
     Route: 065
  4. QUETIAPINE. [Suspect]
     Active Substance: QUETIAPINE
     Indication: PRODUCT USED FOR UNKNOWN INDICATION
     Route: 065

REACTIONS (31)
  - Muscle rigidity [Not Recovered/Not Resolved]
  - Pain in extremity [Not Recovered/Not Resolved]
  - Off label use [Unknown]
  - Confusional state [Unknown]
  - Constipation [Recovered/Resolved]
  - Restless legs syndrome [Not Recovered/Not Resolved]
  - Insomnia [Recovering/Resolving]
  - Skin irritation [Recovered/Resolved]
  - Fibroma [Recovered/Resolved]
  - Speech disorder [Not Recovered/Not Resolved]
  - Stoma site inflammation [Recovered/Resolved]
  - Mood swings [Not Recovered/Not Resolved]
  - Drug ineffective [Not Recovered/Not Resolved]
  - Restlessness [Unknown]
  - Cystitis [Recovered/Resolved]
  - Mobility decreased [Not Recovered/Not Resolved]
  - Urinary tract infection [Unknown]
  - Fatigue [Not Recovered/Not Resolved]
  - Nocturia [Not Recovered/Not Resolved]
  - Headache [Not Recovered/Not Resolved]
  - Stoma site irritation [Recovered/Resolved]
  - Somnolence [Unknown]
  - Tremor [Not Recovered/Not Resolved]
  - Hallucination [Not Recovered/Not Resolved]
  - Bradykinesia [Not Recovered/Not Resolved]
  - Gait disturbance [Not Recovered/Not Resolved]
  - Stoma site erythema [Recovered/Resolved]
  - Stoma site discharge [Recovered/Resolved]
  - Stoma site reaction [Recovered/Resolved]
  - Parkinson^s disease [Not Recovered/Not Resolved]
  - On and off phenomenon [Unknown]

NARRATIVE: CASE EVENT DATE: 201711
